FAERS Safety Report 25455365 (Version 1)
Quarter: 2025Q2

REPORT INFORMATION
  Report Type: Spontaneous
  Country: US (occurrence: US)
  Receive Date: 20250619
  Receipt Date: 20250619
  Transmission Date: 20250716
  Serious: Yes (Other)
  Sender: COHERUS
  Company Number: US-COHERUS BIOSCIENCES, INC- 2025-COH-US000525

PATIENT

DRUGS (4)
  1. UDENYCA [Suspect]
     Active Substance: PEGFILGRASTIM-CBQV
     Indication: Infection prophylaxis
     Route: 058
     Dates: start: 20250417
  2. UDENYCA [Suspect]
     Active Substance: PEGFILGRASTIM-CBQV
     Route: 058
     Dates: start: 20250529
  3. KEYTRUDA [Concomitant]
     Active Substance: PEMBROLIZUMAB
  4. NAVELBINE [Concomitant]
     Active Substance: VINORELBINE TARTRATE

REACTIONS (4)
  - Neutrophil count decreased [Not Recovered/Not Resolved]
  - Bone pain [Recovered/Resolved]
  - Device malfunction [Unknown]
  - Product dose omission issue [Not Recovered/Not Resolved]

NARRATIVE: CASE EVENT DATE: 20250401
